FAERS Safety Report 5029276-7 (Version None)
Quarter: 2006Q2

REPORT INFORMATION
  Report Type: 
  Country: None (occurrence: None)
  Receive Date: 20060619
  Receipt Date: 20060522
  Transmission Date: 20061013
  Serious: Yes (Disabling)
  Sender: FDA-Public Use
  Company Number: GB-BOEHRINGER INGELHEIM PHARMACEUTICALS, INC.-2006-UK-02564UK

PATIENT
  Age: 79 Year
  Sex: Male
  Weight: 96 kg

DRUGS (11)
  1. SPIRIVA [Suspect]
     Indication: CHRONIC OBSTRUCTIVE PULMONARY DISEASE
     Route: 055
     Dates: start: 20060502, end: 20060516
  2. ASPIRIN [Concomitant]
     Route: 048
     Dates: start: 20040101
  3. FELODIPINE [Concomitant]
     Indication: BLOOD PRESSURE INCREASED
     Route: 048
     Dates: start: 20010101
  4. FUROSEMIDE [Concomitant]
     Route: 048
  5. ISOSORBIDE MONONITRATE [Concomitant]
  6. LISINOPRIL [Concomitant]
     Indication: BLOOD PRESSURE INCREASED
     Route: 048
  7. NADOLOL [Concomitant]
     Indication: MYOCARDIAL INFARCTION
     Route: 048
     Dates: start: 20000101
  8. NICORANDIL [Concomitant]
     Indication: BLOOD PRESSURE INCREASED
     Route: 048
     Dates: start: 19970101
  9. SALBUTAMOL [Concomitant]
     Indication: CHRONIC OBSTRUCTIVE PULMONARY DISEASE
     Route: 055
     Dates: start: 20020101
  10. SERETIDE [Concomitant]
     Indication: CHRONIC OBSTRUCTIVE PULMONARY DISEASE
     Route: 055
     Dates: start: 20030101
  11. SIMVASTATIN [Concomitant]
     Route: 048

REACTIONS (4)
  - EPISTAXIS [None]
  - MALAISE [None]
  - RHINORRHOEA [None]
  - SINUS HEADACHE [None]
